FAERS Safety Report 11764256 (Version 1)
Quarter: 2015Q4

REPORT INFORMATION
  Report Type: Spontaneous
  Country: US (occurrence: US)
  Receive Date: 20151120
  Receipt Date: 20151120
  Transmission Date: 20160304
  Serious: No
  Sender: FDA-Public Use
  Company Number: US-ELI_LILLY_AND_COMPANY-US201304003608

PATIENT
  Age: 73 Year
  Sex: Female

DRUGS (2)
  1. FORTEO [Suspect]
     Active Substance: TERIPARATIDE
     Indication: OSTEOPOROSIS
     Dosage: UNK, QD
     Dates: start: 20130408
  2. FORTEO [Suspect]
     Active Substance: TERIPARATIDE
     Dosage: UNK, QD

REACTIONS (10)
  - Injection site rash [Unknown]
  - Dizziness [Unknown]
  - Injection site erythema [Unknown]
  - Muscular weakness [Unknown]
  - Sleep disorder due to a general medical condition [Unknown]
  - Neck pain [Unknown]
  - Chest discomfort [Unknown]
  - Multiple allergies [Unknown]
  - Headache [Recovered/Resolved]
  - Bone pain [Unknown]

NARRATIVE: CASE EVENT DATE: 201304
